FAERS Safety Report 21819949 (Version 1)
Quarter: 2023Q1

REPORT INFORMATION
  Report Type: Spontaneous
  Country: PT (occurrence: None)
  Receive Date: 20230104
  Receipt Date: 20230104
  Transmission Date: 20230417
  Serious: Yes (Other)
  Sender: FDA-Public Use
  Company Number: PT-MICRO LABS LIMITED-ML2023-00001

PATIENT
  Age: 64 Year
  Sex: Female

DRUGS (1)
  1. CLOMIPRAMINE [Suspect]
     Active Substance: CLOMIPRAMINE
     Indication: Cotard^s syndrome

REACTIONS (1)
  - Hepatitis cholestatic [Recovered/Resolved]
